FAERS Safety Report 8799406 (Version 2)
Quarter: 2013Q2

REPORT INFORMATION
  Report Type: Report from Study
  Country: JP (occurrence: JP)
  Receive Date: 20120919
  Receipt Date: 20130508
  Transmission Date: 20140414
  Serious: Yes (Hospitalization)
  Sender: FDA-Public Use
  Company Number: JP-009507513-2012SP034576

PATIENT
  Age: 69 Year
  Sex: Female
  Weight: 78 kg

DRUGS (19)
  1. PEGINTRON [Suspect]
     Indication: CHRONIC HEPATITIS C
     Dosage: 1.5 ?G/KG, QW
     Route: 058
     Dates: start: 20120223, end: 20120229
  2. PEGINTRON [Suspect]
     Dosage: 1.2 ?G/KG, QW
     Route: 058
     Dates: start: 20120301, end: 20120328
  3. PEGINTRON [Suspect]
     Dosage: 1.0 ?G/KG, QW
     Route: 058
     Dates: start: 20120329
  4. PEGINTRON [Suspect]
     Dosage: 70 ?G, QW
     Route: 058
     Dates: end: 20120523
  5. PEGINTRON [Suspect]
     Dosage: 60 MICROGRAM, QW
     Route: 058
     Dates: start: 20120524, end: 20120802
  6. REBETOL [Suspect]
     Indication: CHRONIC HEPATITIS C
     Dosage: 800 MG, QD
     Route: 048
     Dates: start: 20120223, end: 20120307
  7. REBETOL [Suspect]
     Dosage: 600 MG, QD
     Route: 048
     Dates: start: 20120308, end: 20120314
  8. REBETOL [Suspect]
     Dosage: 200 MG, QD
     Route: 048
     Dates: start: 20120315, end: 20120425
  9. REBETOL [Suspect]
     Dosage: 200 MG/2 DAY
     Route: 048
     Dates: start: 20120426, end: 20120605
  10. REBETOL [Suspect]
     Dosage: 200 MG, QD
     Route: 048
     Dates: start: 20120606, end: 20120801
  11. TELAVIC [Suspect]
     Indication: CHRONIC HEPATITIS C
     Dosage: 2250 MG, QD
     Route: 048
     Dates: start: 20120223, end: 20120411
  12. TELAVIC [Suspect]
     Dosage: 1500 MG, QD
     Route: 048
     Dates: start: 20120412, end: 20120530
  13. EPADEL S [Concomitant]
     Indication: DYSLIPIDAEMIA
     Dosage: FORMULATION: POR
     Route: 048
     Dates: start: 20120223
  14. NAUZELIN [Concomitant]
     Indication: PROPHYLAXIS
     Dosage: 30 MG, QD, POR
     Route: 048
     Dates: start: 20120224, end: 20120801
  15. FEBURIC [Concomitant]
     Indication: PROPHYLAXIS
     Dosage: 20 MG, QD
     Route: 048
     Dates: start: 20120221, end: 20120304
  16. FEBURIC [Concomitant]
     Dosage: 40 MG, QD
     Route: 048
     Dates: start: 20120305, end: 20120404
  17. FEBURIC [Concomitant]
     Dosage: 60 MG, QD
     Route: 048
     Dates: start: 20120405, end: 20120801
  18. LOXONIN [Concomitant]
     Indication: PROPHYLAXIS
     Dosage: 60 MG, QD, AS NEEDED
     Route: 048
     Dates: start: 20120221
  19. LOXONIN [Concomitant]
     Dosage: 60 MG, QD
     Route: 048
     Dates: end: 20120704

REACTIONS (1)
  - Bronchitis [Recovered/Resolved]
